FAERS Safety Report 5504070-9 (Version None)
Quarter: 2007Q4

REPORT INFORMATION
  Report Type: 
  Country: None (occurrence: None)
  Receive Date: 20071101
  Receipt Date: 20071101
  Transmission Date: 20080405
  Serious: Yes (Hospitalization)
  Sender: FDA-Public Use
  Company Number: A0690950A

PATIENT
  Age: 31 Year
  Sex: Female

DRUGS (2)
  1. ALLI [Suspect]
     Indication: WEIGHT CONTROL
     Dates: start: 20071010, end: 20071029
  2. MULTI-VITAMIN [Concomitant]

REACTIONS (5)
  - CONVULSION [None]
  - NAUSEA [None]
  - NERVOUSNESS [None]
  - TONGUE BITING [None]
  - URINARY INCONTINENCE [None]
